FAERS Safety Report 7409821-4 (Version None)
Quarter: 2011Q2

REPORT INFORMATION
  Report Type: 
  Country: None (occurrence: None)
  Receive Date: 20110412
  Receipt Date: 20110408
  Transmission Date: 20111010
  Serious: Yes (Hospitalization)
  Sender: FDA-Public Use
  Company Number: RU-PFIZER INC-2011040123

PATIENT
  Age: 55 Year
  Sex: Female

DRUGS (1)
  1. LIPRIMAR [Suspect]
     Indication: MYOCARDIAL ISCHAEMIA
     Dosage: 20 MG, 1X/DAY
     Route: 048
     Dates: start: 20090101, end: 20110221

REACTIONS (1)
  - HEPATITIS TOXIC [None]
